FAERS Safety Report 5138160-X (Version None)
Quarter: 2006Q4

REPORT INFORMATION
  Report Type: 
  Country: None (occurrence: None)
  Receive Date: 20061024
  Receipt Date: 20061011
  Transmission Date: 20070319
  Serious: Yes (Other)
  Sender: FDA-Public Use
  Company Number: 2006126917

PATIENT
  Age: 46 Year
  Sex: Male
  Weight: 112.0385 kg

DRUGS (8)
  1. CHANTIX [Suspect]
     Indication: SMOKING CESSATION THERAPY
     Dosage: 0.5 MG (0.5 MG, 1 IN 1 D)
     Dates: start: 20061010, end: 20061011
  2. ALL OTHER THERAPEUTIC PRODUCTS (ALL OTHER THERAPEUTIC PRODUCTS) [Concomitant]
  3. MONTELUKAT SODIUM (MONTELUKAST SODIUM) [Concomitant]
  4. TRAZODONE HCL [Concomitant]
  5. LOVASTATIN [Concomitant]
  6. FLUOXETINE [Concomitant]
  7. DOXYCYCLINE [Concomitant]
  8. TENIDAP SODIUM (TENIDAP SODIUM) [Concomitant]

REACTIONS (4)
  - DRUG DEPENDENCE [None]
  - FEAR [None]
  - MENTAL DISORDER [None]
  - NIGHTMARE [None]
